FAERS Safety Report 9298326 (Version 1)
Quarter: 2013Q2

REPORT INFORMATION
  Report Type: Spontaneous
  Country: ES (occurrence: ES)
  Receive Date: 20130520
  Receipt Date: 20130520
  Transmission Date: 20140414
  Serious: Yes (Hospitalization)
  Sender: FDA-Public Use
  Company Number: PHHY2013ES048973

PATIENT
  Age: 64 Year
  Sex: Female

DRUGS (4)
  1. VOLTAREN [Suspect]
     Indication: PAIN
     Dosage: 150 MG, UNK
     Route: 048
     Dates: start: 20091108, end: 20091115
  2. VOLTAREN [Suspect]
     Dosage: 50 MG, UNK
     Route: 048
     Dates: start: 20091116, end: 20091130
  3. LISINOPRIL [Suspect]
     Indication: HYPERTENSION
     Dosage: 20 MG, UNK
     Route: 048
     Dates: end: 20091130
  4. DUROGESIC MATRIX [Concomitant]
     Dosage: 25 MG, UNK
     Dates: start: 20090915, end: 20091115

REACTIONS (2)
  - Hyperkalaemia [Recovered/Resolved]
  - Renal failure acute [Not Recovered/Not Resolved]
